FAERS Safety Report 6870561-1 (Version None)
Quarter: 2010Q3

REPORT INFORMATION
  Report Type: 
  Country: None (occurrence: None)
  Receive Date: 20100723
  Receipt Date: 20100709
  Transmission Date: 20110219
  Serious: Yes (Hospitalization, Disabling, Other)
  Sender: FDA-Public Use
  Company Number: FR-ELI_LILLY_AND_COMPANY-FR201006004611

PATIENT
  Age: 91 Year
  Sex: Female
  Weight: 45 kg

DRUGS (5)
  1. FORTEO [Suspect]
     Indication: OSTEOPOROTIC FRACTURE
     Dosage: UNK, UNKNOWN
     Route: 058
     Dates: start: 20100519, end: 20100527
  2. TRAMADOL [Concomitant]
  3. MORPHINAN DERIVATIVES [Concomitant]
  4. LANZOR [Concomitant]
  5. LEXOMIL [Concomitant]

REACTIONS (3)
  - METASTASES TO BONE [None]
  - RENAL CELL CARCINOMA [None]
  - SPINAL CORD COMPRESSION [None]
